FAERS Safety Report 8859216 (Version 1)
Quarter: 2012Q4

REPORT INFORMATION
  Report Type: Spontaneous
  Country: DE (occurrence: None)
  Receive Date: 20121023
  Receipt Date: 20121023
  Transmission Date: 20130627
  Serious: Yes (Other)
  Sender: FDA-Public Use
  Company Number: HRA-CDB20120281

PATIENT
  Age: 29 Year
  Sex: Female

DRUGS (1)
  1. ELLAONE [Suspect]
     Indication: POST COITAL CONTRACEPTION
     Route: 048
     Dates: start: 20110628, end: 20110628

REACTIONS (4)
  - Unintended pregnancy [None]
  - Abortion missed [None]
  - Pregnancy after post coital contraception [None]
  - Abortion induced [None]
